FAERS Safety Report 9441106 (Version 2)
Quarter: 2014Q1

REPORT INFORMATION
  Report Type: Report from Study
  Country: DE (occurrence: DE)
  Receive Date: 20130805
  Receipt Date: 20140211
  Transmission Date: 20141002
  Serious: Yes (Hospitalization)
  Sender: FDA-Public Use
  Company Number: DE-GLAXOSMITHKLINE-B0888543B

PATIENT
  Age: 67 Year
  Sex: Female
  Weight: 80 kg

DRUGS (2)
  1. TOPOTECAN [Suspect]
     Indication: OVARIAN CANCER
     Dosage: 2.37MG PER DAY
     Route: 042
     Dates: start: 20130624, end: 20130628
  2. BLINDED STUDY MEDICATION [Suspect]
     Indication: OVARIAN CANCER
     Dosage: 400MG PER DAY
     Route: 048
     Dates: start: 20130629, end: 20130707

REACTIONS (1)
  - Bronchitis [Recovered/Resolved]
